FAERS Safety Report 20520609 (Version 3)
Quarter: 2022Q2

REPORT INFORMATION
  Report Type: Report from Study
  Country: US (occurrence: None)
  Receive Date: 20220225
  Receipt Date: 20220421
  Transmission Date: 20220721
  Serious: Yes (Death, Hospitalization)
  Sender: FDA-Public Use
  Company Number: US-Eisai Medical Research-EC-2022-109512

PATIENT
  Age: 65 Year
  Sex: Male

DRUGS (5)
  1. LENVIMA [Suspect]
     Active Substance: LENVATINIB
     Indication: Thyroid cancer
     Route: 048
     Dates: start: 202111, end: 2021
  2. LENVIMA [Suspect]
     Active Substance: LENVATINIB
     Dosage: MONDAY, WEDNESDAY AND FRIDAY
     Route: 048
     Dates: start: 20211227
  3. LENVIMA [Suspect]
     Active Substance: LENVATINIB
     Route: 048
     Dates: start: 20220126, end: 2022
  4. LENVIMA [Suspect]
     Active Substance: LENVATINIB
     Dosage: 5 TIMES A WEEK
     Route: 048
     Dates: start: 20220214, end: 202202
  5. LENVIMA [Suspect]
     Active Substance: LENVATINIB
     Dosage: MONDAY, WEDNESDAY AND FRIDAY
     Route: 048
     Dates: start: 20220221, end: 202202

REACTIONS (6)
  - Dehydration [Unknown]
  - Decreased appetite [Recovering/Resolving]
  - Weight decreased [Not Recovered/Not Resolved]
  - Abdominal distension [Unknown]
  - Vocal cord paralysis [Unknown]
  - Death [Fatal]

NARRATIVE: CASE EVENT DATE: 20220201
